FAERS Safety Report 24541106 (Version 2)
Quarter: 2025Q4

REPORT INFORMATION
  Report Type: Report from Study
  Country: BY (occurrence: BY)
  Receive Date: 20241023
  Receipt Date: 20251007
  Transmission Date: 20260118
  Serious: Yes (Hospitalization, Other)
  Sender: MYLAN
  Company Number: BY-MYLANLABS-2024M1094276

PATIENT
  Age: 48 Year
  Sex: Male
  Weight: 75.5 kg

DRUGS (13)
  1. PRETOMANID [Suspect]
     Active Substance: PRETOMANID
     Indication: Product used for unknown indication
     Dosage: 200 MILLIGRAM, QD
     Dates: start: 20240314, end: 20240410
  2. PRETOMANID [Suspect]
     Active Substance: PRETOMANID
     Dosage: UNK
     Dates: start: 20240416, end: 20240913
  3. BEDAQUILINE [Suspect]
     Active Substance: BEDAQUILINE
     Indication: Product used for unknown indication
     Dosage: 400 MILLIGRAM, QD (FOR 2 WEEKS)
     Dates: start: 20240314
  4. BEDAQUILINE [Suspect]
     Active Substance: BEDAQUILINE
     Dosage: 200 MILLIGRAM, 3XW
     Dates: end: 20240410
  5. BEDAQUILINE [Suspect]
     Active Substance: BEDAQUILINE
     Dosage: UNK
     Dates: start: 20240416, end: 20240913
  6. LINEZOLID [Suspect]
     Active Substance: LINEZOLID
     Indication: Product used for unknown indication
     Dosage: 600 MILLIGRAM (112 DOSES)
  7. LINEZOLID [Suspect]
     Active Substance: LINEZOLID
     Dosage: 300 MILLIGRAM
  8. LINEZOLID [Suspect]
     Active Substance: LINEZOLID
     Dosage: UNK
     Dates: start: 20240416, end: 20240913
  9. CLOFAZIMINE [Suspect]
     Active Substance: CLOFAZIMINE
     Indication: Product used for unknown indication
     Dosage: 100 MILLIGRAM, QD
     Dates: start: 20240314, end: 20240410
  10. CLOFAZIMINE [Suspect]
     Active Substance: CLOFAZIMINE
     Dosage: UNK
     Dates: start: 20240416, end: 20240913
  11. PYRIDOXINE HYDROCHLORIDE [Concomitant]
     Active Substance: PYRIDOXINE HYDROCHLORIDE
     Indication: Prophylaxis
     Dosage: 100 MILLIGRAM, QD
     Dates: start: 20240314, end: 20240913
  12. SALINE [Concomitant]
     Active Substance: SODIUM CHLORIDE
     Indication: Prophylaxis
     Dosage: 750 MILLILITER
     Dates: start: 20240314, end: 20240913
  13. DEXTROSE [Concomitant]
     Active Substance: DEXTROSE MONOHYDRATE
     Indication: Prophylaxis
     Dosage: 500 MILLILITER
     Dates: start: 20240409, end: 20240616

REACTIONS (5)
  - Hepatotoxicity [Recovered/Resolved]
  - Pancreatic disorder [Unknown]
  - Renal cyst [Unknown]
  - Weight decreased [Unknown]
  - Hepatomegaly [Unknown]

NARRATIVE: CASE EVENT DATE: 20240401
